FAERS Safety Report 6379211-4 (Version None)
Quarter: 2009Q3

REPORT INFORMATION
  Report Type: 
  Country: None (occurrence: None)
  Receive Date: 20090923
  Receipt Date: 20090923
  Transmission Date: 20100115
  Serious: Yes (Other)
  Sender: FDA-Public Use
  Company Number: None

PATIENT
  Age: 46 Year
  Sex: Female
  Weight: 79.3795 kg

DRUGS (1)
  1. NIASPAN [Suspect]
     Indication: CARDIOVASCULAR EVENT PROPHYLAXIS
     Dosage: 500MG 1 PER NIGHT PO
     Route: 048
     Dates: start: 20090808, end: 20090907

REACTIONS (7)
  - BLOOD PRESSURE INCREASED [None]
  - CHEST DISCOMFORT [None]
  - COLD SWEAT [None]
  - HEADACHE [None]
  - HEART RATE IRREGULAR [None]
  - RESPIRATORY RATE DECREASED [None]
  - VOMITING [None]
